FAERS Safety Report 6537583-1 (Version None)
Quarter: 2010Q1

REPORT INFORMATION
  Report Type: 
  Country: None (occurrence: None)
  Receive Date: 20100114
  Receipt Date: 20100113
  Transmission Date: 20100710
  Serious: Yes (Other)
  Sender: FDA-Public Use
  Company Number: A0839155A

PATIENT
  Age: 26 Year
  Sex: Female

DRUGS (2)
  1. NICODERM CQ [Suspect]
     Dosage: 14MG UNKNOWN
     Route: 062
     Dates: start: 20100108, end: 20100113
  2. ALBUTEROL [Concomitant]

REACTIONS (4)
  - ASTHMA [None]
  - DECREASED APPETITE [None]
  - IRRITABILITY [None]
  - NERVOUSNESS [None]
